FAERS Safety Report 9719139 (Version 6)
Quarter: 2015Q2

REPORT INFORMATION
  Report Type: Spontaneous
  Country: AT (occurrence: AT)
  Receive Date: 20131127
  Receipt Date: 20150401
  Transmission Date: 20150821
  Serious: Yes (Other)
  Sender: FDA-Public Use
  Company Number: PHHY2013AT135688

PATIENT
  Age: 17 Year
  Sex: Female

DRUGS (6)
  1. QUETIAPINE SANDOZ [Suspect]
     Active Substance: QUETIAPINE
     Indication: HALLUCINATION, AUDITORY
     Dosage: UNK
     Route: 065
     Dates: start: 201407
  2. DEPAKINE [Concomitant]
     Active Substance: VALPROATE SODIUM
     Indication: PRODUCT USED FOR UNKNOWN INDICATION
     Route: 065
  3. QUETIAPINE SANDOZ [Suspect]
     Active Substance: QUETIAPINE
     Indication: HALLUCINATION
     Dosage: 0.5 DF, UNK
     Route: 065
  4. QUETIAPINE SANDOZ [Suspect]
     Active Substance: QUETIAPINE
     Indication: HEADACHE
     Dosage: 0.25 DF, UNK
     Route: 065
  5. MIRTAZAPIN [Concomitant]
     Active Substance: MIRTAZAPINE
     Indication: PRODUCT USED FOR UNKNOWN INDICATION
     Route: 065
     Dates: start: 201304
  6. QUETIAPINE SANDOZ [Suspect]
     Active Substance: QUETIAPINE
     Indication: INSOMNIA
     Dosage: UNK
     Route: 065
     Dates: start: 201304

REACTIONS (13)
  - Drug withdrawal syndrome [Recovered/Resolved]
  - Musculoskeletal stiffness [Unknown]
  - Vertigo [Unknown]
  - Muscle twitching [Unknown]
  - Restlessness [Unknown]
  - Fatigue [Unknown]
  - Headache [Recovering/Resolving]
  - Tremor [Unknown]
  - Insomnia [Not Recovered/Not Resolved]
  - Fall [Unknown]
  - Off label use [Unknown]
  - Disturbance in attention [Unknown]
  - Balance disorder [Unknown]

NARRATIVE: CASE EVENT DATE: 201305
